FAERS Safety Report 6256109-3 (Version None)
Quarter: 2009Q2

REPORT INFORMATION
  Report Type: 
  Country: None (occurrence: None)
  Receive Date: 20090630
  Receipt Date: 20090630
  Transmission Date: 20091009
  Serious: Yes (Other)
  Sender: FDA-Public Use
  Company Number: None

PATIENT
  Age: 61 Year
  Sex: Female
  Weight: 48.9885 kg

DRUGS (1)
  1. ARTHROTEC [Suspect]
     Indication: SPINAL OSTEOARTHRITIS
     Dosage: 1 TABLET TWICE DAILY PO
     Route: 048
     Dates: start: 20080901, end: 20090518

REACTIONS (4)
  - ABDOMINAL DISCOMFORT [None]
  - DIARRHOEA [None]
  - INCONTINENCE [None]
  - WEIGHT DECREASED [None]
